FAERS Safety Report 19719268 (Version 1)
Quarter: 2021Q3

REPORT INFORMATION
  Report Type: Spontaneous
  Country: US (occurrence: US)
  Receive Date: 20210817
  Receipt Date: 20210817
  Transmission Date: 20211014
  Serious: Yes (Disabling)
  Sender: FDA-Public Use
  Company Number: None

PATIENT
  Age: 90 Year
  Sex: Female
  Weight: 63.5 kg

DRUGS (13)
  1. TORESEMIDE [Concomitant]
     Active Substance: TORSEMIDE
  2. VITAMIN C [Concomitant]
     Active Substance: ASCORBIC ACID
  3. TUMS [Concomitant]
     Active Substance: CALCIUM CARBONATE
  4. HYDRALAZINE [Concomitant]
     Active Substance: HYDRALAZINE HYDROCHLORIDE
  5. ARED [Concomitant]
  6. PAROXETINE. [Concomitant]
     Active Substance: PAROXETINE
  7. CARVEDILOL. [Concomitant]
     Active Substance: CARVEDILOL
  8. EXEDRIN [Concomitant]
  9. LEVOTHYROXINE. [Concomitant]
     Active Substance: LEVOTHYROXINE
  10. CIPROFLOXACIN HCL 250MG [Suspect]
     Active Substance: CIPROFLOXACIN
     Indication: URINARY TRACT INFECTION
     Dosage: ?          QUANTITY:1 DF DOSAGE FORM;?
     Route: 048
     Dates: start: 20210605, end: 20210610
  11. TIMOLOL EYE DROPS [Concomitant]
     Active Substance: TIMOLOL
  12. VITAMIN B12 [Concomitant]
     Active Substance: CYANOCOBALAMIN
  13. TYLENOL [Concomitant]
     Active Substance: ACETAMINOPHEN

REACTIONS (9)
  - Peripheral swelling [None]
  - Myalgia [None]
  - Confusional state [None]
  - Pruritus [None]
  - Hallucination, visual [None]
  - Memory impairment [None]
  - Hallucination, auditory [None]
  - Joint swelling [None]
  - Dyspnoea [None]

NARRATIVE: CASE EVENT DATE: 20210608
